FAERS Safety Report 26176438 (Version 1)
Quarter: 2025Q4

REPORT INFORMATION
  Report Type: Spontaneous
  Country: PR (occurrence: PR)
  Receive Date: 20251218
  Receipt Date: 20251218
  Transmission Date: 20260119
  Serious: No
  Sender: ANI
  Company Number: PR-ANIPHARMA-2025-PR-000112

PATIENT
  Age: 53 Year
  Sex: Male
  Weight: 139.71 kg

DRUGS (5)
  1. CORTICOTROPIN [Suspect]
     Active Substance: CORTICOTROPIN
     Indication: Gout
     Dosage: 40 U DAILY
     Route: 058
     Dates: start: 202507, end: 202508
  2. INDOMETHACIN [Concomitant]
     Active Substance: INDOMETHACIN
     Route: 048
  3. DECADRON [Concomitant]
     Active Substance: DEXAMETHASONE
     Route: 048
  4. Cortisone Acetate Powder [Concomitant]
  5. ALLOPURINOL [Concomitant]
     Active Substance: ALLOPURINOL
     Route: 050

REACTIONS (2)
  - Drug ineffective [Unknown]
  - Abnormal weight gain [Unknown]
